FAERS Safety Report 9338768 (Version 3)
Quarter: 2013Q3

REPORT INFORMATION
  Report Type: Report from Study
  Country: US (occurrence: US)
  Receive Date: 20130610
  Receipt Date: 20130801
  Transmission Date: 20140515
  Serious: Yes (Hospitalization)
  Sender: FDA-Public Use
  Company Number: US-JNJFOC-20130601259

PATIENT
  Age: 15 Year
  Sex: Male
  Weight: 59.7 kg

DRUGS (11)
  1. REMICADE [Suspect]
     Indication: CROHN^S DISEASE
     Route: 042
     Dates: start: 20130409
  2. REMICADE [Suspect]
     Indication: CROHN^S DISEASE
     Route: 042
     Dates: start: 20130218
  3. REMICADE [Suspect]
     Indication: CROHN^S DISEASE
     Route: 042
     Dates: start: 20121127
  4. REMICADE [Suspect]
     Indication: CROHN^S DISEASE
     Route: 042
     Dates: start: 2012
  5. 6-MERCAPTOPURINE [Concomitant]
     Indication: CROHN^S DISEASE
     Route: 065
  6. 5-ASA [Concomitant]
     Indication: CROHN^S DISEASE
     Route: 048
  7. FERROUS SULFATE [Concomitant]
     Route: 065
  8. FLUTICASONE PROPIONATE [Concomitant]
     Route: 065
  9. HYDROCORTISONE [Concomitant]
     Route: 065
  10. MULTIVITAMINS [Concomitant]
     Route: 065
  11. VITAMIN D [Concomitant]
     Route: 065

REACTIONS (3)
  - Crohn^s disease [Recovered/Resolved]
  - Ileal stenosis [Recovered/Resolved]
  - Intestinal fistula [Recovered/Resolved]
